FAERS Safety Report 20495433 (Version 1)
Quarter: 2022Q1

REPORT INFORMATION
  Report Type: Spontaneous
  Country: None (occurrence: US)
  Receive Date: 20220221
  Receipt Date: 20220221
  Transmission Date: 20220423
  Serious: No
  Sender: FDA-Public Use
  Company Number: US-HILL DERMACEUTICALS, INC.-2126060

PATIENT
  Sex: Male

DRUGS (1)
  1. DERMOTIC [Suspect]
     Active Substance: FLUOCINOLONE ACETONIDE
     Route: 061

REACTIONS (1)
  - Pain [Unknown]
